FAERS Safety Report 4452802-3 (Version None)
Quarter: 2004Q3

REPORT INFORMATION
  Report Type: 
  Country: None (occurrence: None)
  Receive Date: 20040916
  Receipt Date: 20040906
  Transmission Date: 20050211
  Serious: Yes (Other)
  Sender: FDA-Public Use
  Company Number: HQWYE637128APR04

PATIENT
  Age: 27 Year
  Sex: Male

DRUGS (4)
  1. RAPAMUNE [Suspect]
     Indication: IMMUNOSUPPRESSION
     Dosage: ORAL,STOPPED 14 DAYS AFTER RENAL TRANSPLANT
     Route: 048
  2. RAPAMUNE [Suspect]
     Indication: PROPHYLAXIS AGAINST TRANSPLANT REJECTION
     Dosage: ORAL,STOPPED 14 DAYS AFTER RENAL TRANSPLANT
     Route: 048
  3. TACROLIMUS (TACROLIMUS) [Concomitant]
  4. PREDNISOLONE [Concomitant]

REACTIONS (1)
  - HAEMOLYTIC ANAEMIA [None]
